FAERS Safety Report 13494105 (Version 2)
Quarter: 2017Q2

REPORT INFORMATION
  Report Type: Report from Study
  Country: US (occurrence: US)
  Receive Date: 20170428
  Receipt Date: 20170501
  Transmission Date: 20170830
  Serious: Yes (Hospitalization)
  Sender: FDA-Public Use
  Company Number: US-ROCHE-1926165

PATIENT
  Sex: Male
  Weight: 70.37 kg

DRUGS (4)
  1. RITUXAN [Suspect]
     Active Substance: RITUXIMAB
     Indication: DIFFUSE LARGE B-CELL LYMPHOMA
     Route: 065
     Dates: start: 20170323
  2. BUMEX [Concomitant]
     Active Substance: BUMETANIDE
  3. RITUXAN [Suspect]
     Active Substance: RITUXIMAB
     Route: 065
     Dates: start: 20170407
  4. LASIX [Concomitant]
     Active Substance: FUROSEMIDE

REACTIONS (4)
  - Sepsis [Recovering/Resolving]
  - Colitis [Recovering/Resolving]
  - Pyrexia [Recovered/Resolved]
  - Ascites [Recovered/Resolved]
